FAERS Safety Report 6417160-3 (Version None)
Quarter: 2009Q4

REPORT INFORMATION
  Report Type: 
  Country: None (occurrence: None)
  Receive Date: 20091028
  Receipt Date: 20091019
  Transmission Date: 20100525
  Serious: Yes (Other)
  Sender: FDA-Public Use
  Company Number: SE-AMGEN-UK365224

PATIENT
  Sex: Female

DRUGS (7)
  1. MIMPARA [Suspect]
     Indication: HYPERPARATHYROIDISM SECONDARY
     Route: 048
     Dates: start: 20070219
  2. PROGRAF [Concomitant]
     Route: 048
  3. CELLCEPT [Concomitant]
     Route: 048
  4. PREDNISOLONE [Concomitant]
     Route: 048
  5. CITALOPRAM HYDROBROMIDE [Concomitant]
     Route: 048
  6. PLENDIL [Concomitant]
     Route: 048
  7. SODIUM BICARBONATE IN PLASTIC CONTAINER [Concomitant]
     Route: 048

REACTIONS (5)
  - BLOOD CREATININE INCREASED [None]
  - BLOOD PARATHYROID HORMONE INCREASED [None]
  - CALCIPHYLAXIS [None]
  - COMPLICATIONS OF TRANSPLANTED KIDNEY [None]
  - RENAL FAILURE [None]
